FAERS Safety Report 5935015-5 (Version None)
Quarter: 2008Q4

REPORT INFORMATION
  Report Type: 
  Country: None (occurrence: None)
  Receive Date: 20081014
  Receipt Date: 20080624
  Transmission Date: 20090506
  Serious: Yes (Other)
  Sender: FDA-Public Use
  Company Number: SP01952

PATIENT
  Age: 67 Year
  Sex: Female

DRUGS (8)
  1. OSMOPREP [Suspect]
     Indication: COLONOSCOPY
     Dosage: (42 GM, 28 TABLETS; SPLIT DOSING), ORAL
     Route: 048
     Dates: start: 20080311, end: 20080312
  2. METHOTREXATE [Concomitant]
  3. VALSARTAN AND HYDROCHLOROTHIAZIDE [Concomitant]
  4. OMEPRAZOLE [Concomitant]
  5. AMLODIPINE BESYLATE AND BENAZEPRIL HCL [Concomitant]
  6. XANAX [Concomitant]
  7. FOLIC ACID [Concomitant]
  8. VITAMINS [Concomitant]

REACTIONS (3)
  - BLOOD CREATININE INCREASED [None]
  - BLOOD UREA INCREASED [None]
  - RENAL FAILURE [None]
